FAERS Safety Report 24916618 (Version 1)
Quarter: 2025Q1

REPORT INFORMATION
  Report Type: Spontaneous
  Country: US (occurrence: None)
  Receive Date: 20250131
  Receipt Date: 20250131
  Transmission Date: 20250409
  Serious: Yes (Hospitalization)
  Sender: FDA-CTU
  Company Number: None

PATIENT
  Sex: Female

DRUGS (4)
  1. DEVICE [Suspect]
     Active Substance: DEVICE
     Indication: Pulmonary arterial hypertension
     Route: 042
     Dates: start: 202410
  2. SOD CHLOR POSIFLUSH {10ML) [Concomitant]
  3. SODIUM CHLOR (100ML/BAG [Concomitant]
  4. VELETRI [Concomitant]
     Active Substance: EPOPROSTENOL

REACTIONS (7)
  - Device alarm issue [None]
  - Device physical property issue [None]
  - Device issue [None]
  - Pallor [None]
  - Dizziness [None]
  - Diarrhoea [None]
  - Flushing [None]
